APPROVED DRUG PRODUCT: ARSENIC TRIOXIDE
Active Ingredient: ARSENIC TRIOXIDE
Strength: 2MG/ML
Dosage Form/Route: INJECTABLE;INJECTION
Application: A217413 | Product #002 | TE Code: AP
Applicant: MSN LABORATORIES PRIVATE LTD
Approved: Apr 20, 2023 | RLD: No | RS: No | Type: RX